FAERS Safety Report 7109829-2 (Version None)
Quarter: 2010Q4

REPORT INFORMATION
  Report Type: 
  Country: None (occurrence: None)
  Receive Date: 20101118
  Receipt Date: 20101108
  Transmission Date: 20110411
  Serious: Yes (Hospitalization, Other)
  Sender: FDA-Public Use
  Company Number: PHHY2010US75541

PATIENT
  Sex: Female
  Weight: 88 kg

DRUGS (5)
  1. RECLAST [Suspect]
     Indication: OSTEOPOROSIS
     Dosage: UNK
     Dates: start: 20090301
  2. RECLAST [Suspect]
     Dosage: 5 MG/100
     Dates: start: 20100330
  3. CAPTOPRIL [Concomitant]
  4. XANAX [Concomitant]
  5. PERICET DARVICE [Concomitant]

REACTIONS (3)
  - CEREBROVASCULAR ACCIDENT [None]
  - MUSCLE DISORDER [None]
  - WEIGHT DECREASED [None]
